FAERS Safety Report 8273467 (Version 4)
Quarter: 2012Q4

REPORT INFORMATION
  Report Type: 
  Country: DE (occurrence: DE)
  Receive Date: 20111202
  Receipt Date: 20120912
  Transmission Date: 20130627
  Serious: Yes (Other)
  Sender: FDA-Public Use
  Company Number: DE-GILEAD-2011-0047416

PATIENT
  Age: 37 Year
  Sex: Male

DRUGS (2)
  1. HEPSERA [Suspect]
     Indication: HEPATITIS B
     Dosage: 10 mg, UNK
     Route: 048
     Dates: start: 20070129, end: 20111129
  2. HEPSERA [Suspect]
     Dosage: 10 mg, every 2 days
     Dates: start: 20111129

REACTIONS (1)
  - Renal failure [Not Recovered/Not Resolved]
